FAERS Safety Report 4568212-4 (Version None)
Quarter: 2005Q1

REPORT INFORMATION
  Report Type: 
  Country: None (occurrence: None)
  Receive Date: 20050131
  Receipt Date: 20050114
  Transmission Date: 20050727
  Serious: Yes (Other)
  Sender: FDA-Public Use
  Company Number: 200510149GDS

PATIENT
  Age: 53 Year
  Sex: Female
  Weight: 67 kg

DRUGS (1)
  1. AVELOX [Suspect]
     Indication: DIVERTICULITIS
     Dosage: 400 MG, TOTAL DAILY; ORAL
     Route: 048

REACTIONS (4)
  - DEAFNESS BILATERAL [None]
  - HEAD DISCOMFORT [None]
  - HYPOACUSIS [None]
  - VIRAL INFECTION [None]
